FAERS Safety Report 9247546 (Version 3)
Quarter: 2013Q4

REPORT INFORMATION
  Report Type: Spontaneous
  Country: BR (occurrence: BR)
  Receive Date: 20130423
  Receipt Date: 20131018
  Transmission Date: 20140711
  Serious: Yes (Hospitalization, Other)
  Sender: FDA-Public Use
  Company Number: PHHY2013BR038699

PATIENT
  Age: 64 Year
  Sex: Female

DRUGS (13)
  1. APRESOLIN [Suspect]
     Dosage: 2 DF (25 MG) DAILY, 1 IN THE MORNING AND 1 AT NIGHT
     Route: 048
  2. FORADIL [Suspect]
     Indication: ASTHMA
     Dosage: 2 DF (12 MCG), DAILY
  3. ALDAZIDA [Concomitant]
     Dosage: 50 MG, UNK
  4. NEBILET [Concomitant]
     Dosage: 5 MG, UNK
  5. OLMESARTAN MEDOXOMIL [Concomitant]
     Dosage: UNK UKN, UNK
  6. METFORMIN HYDROCHLORIDE [Concomitant]
     Dosage: 500 MG, UNK
  7. MONTELUKAST SODIUM [Concomitant]
     Dosage: 10 MG, UNK
  8. LIPISTAT//ATORVASTATIN CALCIUM [Concomitant]
     Dosage: 0.5 DF, (10 MG) PER DAY
     Route: 048
  9. ROSUCARD [Concomitant]
     Dosage: 10 MG, UNK
  10. TOLREST [Concomitant]
     Dosage: 50 MG, UNK
  11. NASONEX [Concomitant]
     Dosage: 50 MG, UNK
  12. SERETID [Concomitant]
     Indication: ASTHMA
     Dosage: 2 DF, (50/500) PER DAY
  13. CARDIZEM [Concomitant]
     Indication: CARDIAC HYPERTROPHY
     Dosage: 1 DF, (10 MG) PER DAY
     Route: 048

REACTIONS (9)
  - Pneumonia [Recovered/Resolved]
  - Blood pressure increased [Recovered/Resolved]
  - Daydreaming [Recovered/Resolved]
  - Movement disorder [Recovered/Resolved]
  - Anger [Recovered/Resolved]
  - Emotional disorder [Recovered/Resolved]
  - Feeling abnormal [Recovered/Resolved]
  - Dizziness [Recovered/Resolved]
  - Anxiety [Recovered/Resolved]
